FAERS Safety Report 11398724 (Version 1)
Quarter: 2015Q3

REPORT INFORMATION
  Report Type: Spontaneous
  Country: US (occurrence: None)
  Receive Date: 20150804
  Receipt Date: 20150804
  Transmission Date: 20151125
  Serious: Yes (Other)
  Sender: FDA-Public Use
  Company Number: 1000069035

PATIENT
  Age: 72 Year
  Sex: Male

DRUGS (1)
  1. NAMENDA XR [Suspect]
     Active Substance: MEMANTINE HYDROCHLORIDE
     Indication: DEMENTIA ALZHEIMER^S TYPE
     Dosage: 28 MG (28 MG, 1 IN 1 D), ORAL
     Route: 048
     Dates: start: 20140618, end: 20140707

REACTIONS (3)
  - Head injury [None]
  - Fall [None]
  - Limb injury [None]

NARRATIVE: CASE EVENT DATE: 2014
